FAERS Safety Report 17488306 (Version 1)
Quarter: 2020Q1

REPORT INFORMATION
  Report Type: Spontaneous
  Country: US (occurrence: US)
  Receive Date: 20200302
  Receipt Date: 20200302
  Transmission Date: 20200409
  Serious: Yes (Life-Threatening)
  Sender: FDA-Public Use
  Company Number: None

PATIENT
  Age: 46 Year
  Sex: Male
  Weight: 74.25 kg

DRUGS (4)
  1. ALLEVE 200MG TABS [Concomitant]
  2. CHANTIX [Suspect]
     Active Substance: VARENICLINE TARTRATE
     Indication: SMOKING CESSATION THERAPY
     Route: 048
     Dates: start: 20191029, end: 20191212
  3. ALBUTEROL INHALER [Concomitant]
     Active Substance: ALBUTEROL
  4. WIXELA 250-50 MCG/DOS INHALER [Concomitant]

REACTIONS (2)
  - Suicide attempt [None]
  - Physical assault [None]

NARRATIVE: CASE EVENT DATE: 20191212
